FAERS Safety Report 20875927 (Version 4)
Quarter: 2023Q2

REPORT INFORMATION
  Report Type: Spontaneous
  Country: US (occurrence: US)
  Receive Date: 20220526
  Receipt Date: 20230404
  Transmission Date: 20230722
  Serious: Yes (Other)
  Sender: FDA-Public Use
  Company Number: US-PFIZER INC-202200739546

PATIENT
  Age: 63 Year
  Sex: Female

DRUGS (5)
  1. SOMAVERT [Suspect]
     Active Substance: PEGVISOMANT
     Dosage: 30 MG, ALTERNATE DAY (INJECT 30 MG UNDER THE SKIN EVERY OTHER DAY)
     Route: 058
  2. LIPITOR [Concomitant]
     Active Substance: ATORVASTATIN CALCIUM
     Dosage: UNK
  3. CABERGOLINE [Concomitant]
     Active Substance: CABERGOLINE
     Dosage: UNK
  4. BETIMOL [TIMOLOL] [Concomitant]
     Dosage: UNK
  5. VITAMIN D NOS [Concomitant]
     Active Substance: VITAMIN D NOS
     Dosage: UNK

REACTIONS (4)
  - Pituitary tumour [Unknown]
  - Hip arthroplasty [Unknown]
  - Product dose omission in error [Unknown]
  - Off label use [Unknown]

NARRATIVE: CASE EVENT DATE: 20211221
